FAERS Safety Report 4879920-X (Version None)
Quarter: 2006Q1

REPORT INFORMATION
  Report Type: 
  Country: None (occurrence: None)
  Receive Date: 20060113
  Receipt Date: 20051122
  Transmission Date: 20060701
  Serious: Yes (Hospitalization, Other)
  Sender: FDA-Public Use
  Company Number: US-MERCK-0511USA03859

PATIENT
  Age: 52 Year
  Sex: Female
  Weight: 95 kg

DRUGS (1)
  1. VIOXX [Suspect]
     Indication: ARTHRALGIA
     Route: 048
     Dates: start: 20000101, end: 20010101

REACTIONS (12)
  - ARTHRALGIA [None]
  - BACK PAIN [None]
  - CHEST PAIN [None]
  - CORONARY ARTERY DISEASE [None]
  - DIVERTICULITIS [None]
  - GASTROOESOPHAGEAL REFLUX DISEASE [None]
  - HYPERTENSION [None]
  - HYPERTENSIVE HEART DISEASE [None]
  - JOINT DISLOCATION [None]
  - MYOCARDIAL INFARCTION [None]
  - SPINAL DISORDER [None]
  - SYNCOPE [None]
